FAERS Safety Report 25188655 (Version 1)
Quarter: 2025Q2

REPORT INFORMATION
  Report Type: Spontaneous
  Country: FR (occurrence: FR)
  Receive Date: 20250411
  Receipt Date: 20250411
  Transmission Date: 20250716
  Serious: Yes (Other)
  Sender: HIKMA
  Company Number: None

PATIENT
  Age: 78 Year
  Sex: Female
  Weight: 76 kg

DRUGS (5)
  1. KETAMINE HYDROCHLORIDE [Suspect]
     Active Substance: KETAMINE HYDROCHLORIDE
     Indication: Induction of anaesthesia
     Route: 042
     Dates: start: 20250228, end: 20250228
  2. PROPOFOL [Suspect]
     Active Substance: PROPOFOL
     Indication: Induction of anaesthesia
     Route: 042
     Dates: start: 20250228, end: 20250228
  3. ROCURONIUM [Suspect]
     Active Substance: ROCURONIUM BROMIDE
     Indication: Induction of anaesthesia
     Route: 042
     Dates: start: 20250228, end: 20250228
  4. SUFENTANIL CITRATE [Suspect]
     Active Substance: SUFENTANIL CITRATE
     Indication: Induction of anaesthesia
     Route: 042
     Dates: start: 20250228, end: 20250228
  5. VANCOMYCIN HYDROCHLORIDE [Suspect]
     Active Substance: VANCOMYCIN HYDROCHLORIDE
     Indication: Antibiotic prophylaxis
     Route: 042
     Dates: start: 20250228, end: 20250228

REACTIONS (1)
  - Atrial fibrillation [Recovered/Resolved]

NARRATIVE: CASE EVENT DATE: 20250228
